FAERS Safety Report 4976608-1 (Version None)
Quarter: 2006Q2

REPORT INFORMATION
  Report Type: 
  Country: None (occurrence: None)
  Receive Date: 20060419
  Receipt Date: 20051114
  Transmission Date: 20061013
  Serious: Yes (Hospitalization)
  Sender: FDA-Public Use
  Company Number: US-MERCK-0511USA02229

PATIENT
  Age: 62 Year
  Sex: Female
  Weight: 50 kg

DRUGS (36)
  1. VIOXX [Suspect]
     Indication: OSTEOARTHRITIS
     Route: 048
     Dates: start: 20000706, end: 20041004
  2. FLUOXETINE [Concomitant]
     Route: 065
  3. CLARITIN [Concomitant]
     Route: 065
  4. PSEUDOEPHEDRINE [Concomitant]
     Route: 065
  5. NORVASC [Concomitant]
     Route: 065
  6. PROPOXYPHENE NAPSYLATE [Concomitant]
     Route: 065
  7. PREMARIN [Concomitant]
     Route: 065
  8. MEDROXYPROGESTERONE ACETATE [Concomitant]
     Route: 065
  9. AVELOX [Concomitant]
     Route: 065
  10. CEFTIN [Concomitant]
     Route: 065
  11. ANEXSIA [Concomitant]
     Route: 065
  12. SKELAXIN [Concomitant]
     Route: 065
  13. DIFLUCAN [Concomitant]
     Route: 065
  14. ACEBUTOLOL [Concomitant]
     Route: 065
  15. NITROQUICK [Concomitant]
     Route: 065
  16. LIPITOR [Concomitant]
     Route: 065
  17. HYDROCHLOROTHIAZIDE [Concomitant]
     Route: 065
  18. ATENOLOL [Concomitant]
     Route: 065
  19. ALTACE [Concomitant]
     Route: 065
  20. GUAIFENESIN [Concomitant]
     Route: 065
  21. LORATADINE [Concomitant]
     Route: 065
  22. PROTONIX [Concomitant]
     Route: 065
  23. AMOXICILLIN AND CLAVULANATE POTASSIUM [Concomitant]
     Route: 065
  24. ISOSORBIDE [Concomitant]
     Route: 065
  25. CIPROFLOXACIN [Concomitant]
     Route: 065
  26. METRONIDAZOLE [Concomitant]
     Route: 065
  27. MUCO-FEN DM [Concomitant]
     Route: 065
  28. RHINOCORT [Concomitant]
     Route: 065
  29. CLARINEX [Concomitant]
     Route: 065
  30. PHENAZOPYRIDINE HYDROCHLORIDE [Concomitant]
     Route: 065
  31. CEPHALEXIN [Concomitant]
     Route: 065
  32. SULFAMETHOXAZOLE AND TRIMETHOPRIM [Concomitant]
     Route: 065
  33. ACETAMINOPHEN AND CODEINE [Concomitant]
     Route: 065
  34. CEFUROXIME [Concomitant]
     Route: 065
  35. ASPIRIN [Concomitant]
     Route: 065
  36. FOSAMAX [Concomitant]
     Route: 065

REACTIONS (6)
  - ANGINA PECTORIS [None]
  - BLOOD CHOLESTEROL INCREASED [None]
  - DYSPEPSIA [None]
  - HYPERTENSION [None]
  - MYOCARDIAL INFARCTION [None]
  - UTERINE LEIOMYOMA [None]
